FAERS Safety Report 15091399 (Version 1)
Quarter: 2018Q2

REPORT INFORMATION
  Report Type: Spontaneous
  Country: IL (occurrence: IL)
  Receive Date: 20180629
  Receipt Date: 20180629
  Transmission Date: 20180711
  Serious: Yes (Other)
  Sender: FDA-Public Use
  Company Number: IL-PFIZER INC-2018253503

PATIENT
  Sex: Male

DRUGS (2)
  1. GEODON [Suspect]
     Active Substance: ZIPRASIDONE HYDROCHLORIDE\ZIPRASIDONE MESYLATE
     Indication: SCHIZOPHRENIA
     Dosage: 40 MG, UNK
  2. GEODON [Suspect]
     Active Substance: ZIPRASIDONE HYDROCHLORIDE\ZIPRASIDONE MESYLATE
     Indication: SCHIZOAFFECTIVE DISORDER
     Dosage: DOSAGE UP TO 160 OR 180 MG, UNK

REACTIONS (11)
  - Malaise [Recovered/Resolved]
  - Disease recurrence [Recovered/Resolved]
  - Paedophilia [Recovered/Resolved]
  - Myalgia [Recovered/Resolved]
  - Nervousness [Recovered/Resolved]
  - Hallucination, visual [Recovered/Resolved]
  - Night blindness [Recovered/Resolved]
  - Bone pain [Recovered/Resolved]
  - Urinary retention [Recovered/Resolved]
  - Vision blurred [Recovered/Resolved]
  - Orchitis [Recovered/Resolved]
